FAERS Safety Report 18564192 (Version 3)
Quarter: 2022Q3

REPORT INFORMATION
  Report Type: Report from Study
  Country: US (occurrence: US)
  Receive Date: 20201201
  Receipt Date: 20220714
  Transmission Date: 20221027
  Serious: Yes (Other)
  Sender: FDA-Public Use
  Company Number: US-SA-2020SA336927

PATIENT
  Age: 70 Year
  Sex: Female

DRUGS (3)
  1. DUPILUMAB [Suspect]
     Active Substance: DUPILUMAB
     Indication: Dermatitis atopic
     Dosage: 600 MG, 1X
     Route: 058
     Dates: start: 20201022, end: 20201022
  2. DUPILUMAB [Suspect]
     Active Substance: DUPILUMAB
     Dosage: 300 MG, QOW
     Route: 058
  3. DUPILUMAB [Suspect]
     Active Substance: DUPILUMAB
     Indication: Dermatitis atopic
     Dosage: 300 MG, FREQUENCY: OTHER
     Route: 057
     Dates: start: 202011, end: 20211011

REACTIONS (12)
  - Staphylococcal infection [Not Recovered/Not Resolved]
  - Metastatic malignant melanoma [Unknown]
  - Alopecia [Not Recovered/Not Resolved]
  - Dysuria [Not Recovered/Not Resolved]
  - Lacrimation increased [Unknown]
  - Rash [Unknown]
  - Arthralgia [Unknown]
  - Conjunctivitis [Recovered/Resolved]
  - Eyelid margin crusting [Recovered/Resolved]
  - Eye swelling [Recovered/Resolved]
  - Dry eye [Unknown]
  - Product use issue [Unknown]

NARRATIVE: CASE EVENT DATE: 20200101
